FAERS Safety Report 19998864 (Version 2)
Quarter: 2021Q4

REPORT INFORMATION
  Report Type: Report from Study
  Country: CA (occurrence: CA)
  Receive Date: 20211027
  Receipt Date: 20211105
  Transmission Date: 20220303
  Serious: Yes (Other)
  Sender: FDA-Public Use
  Company Number: CA-BEH-2021135834

PATIENT
  Age: 64 Year
  Sex: Female
  Weight: 75 kg

DRUGS (2)
  1. HIZENTRA [Suspect]
     Active Substance: HUMAN IMMUNOGLOBULIN G
     Indication: Chronic inflammatory demyelinating polyradiculoneuropathy
     Dosage: 15 GRAM, QW
     Route: 058
     Dates: start: 20210716, end: 20211015
  2. INSULIN NOS [Concomitant]
     Active Substance: INSULIN NOS
     Indication: Diabetes mellitus

REACTIONS (26)
  - Malabsorption from injection site [Unknown]
  - Product use issue [Unknown]
  - Fatigue [Unknown]
  - Infusion site swelling [Recovered/Resolved]
  - Administration site swelling [Unknown]
  - Headache [Unknown]
  - Injection site haemorrhage [Unknown]
  - Drug ineffective [Unknown]
  - Chronic inflammatory demyelinating polyradiculoneuropathy [Unknown]
  - Malaise [Unknown]
  - Drug ineffective [Unknown]
  - Fatigue [Unknown]
  - Dyspnoea [Unknown]
  - Cardiac disorder [Unknown]
  - Wheezing [Unknown]
  - Rales [Unknown]
  - Infusion site swelling [Unknown]
  - No adverse event [Unknown]
  - Product use issue [Unknown]
  - Drug ineffective [Unknown]
  - Drug intolerance [Unknown]
  - Muscular weakness [Unknown]
  - Injection site swelling [Unknown]
  - Dyspnoea [Unknown]
  - Wheezing [Unknown]
  - Fine motor skill dysfunction [Unknown]

NARRATIVE: CASE EVENT DATE: 20211001
